FAERS Safety Report 13081364 (Version 1)
Quarter: 2017Q1

REPORT INFORMATION
  Report Type: Spontaneous
  Country: US (occurrence: US)
  Receive Date: 20170103
  Receipt Date: 20170103
  Transmission Date: 20170428
  Serious: No
  Sender: FDA-Public Use
  Company Number: US-ASTRAZENECA-2017SE00063

PATIENT
  Age: 55 Year
  Sex: Female

DRUGS (32)
  1. NEXIUM [Suspect]
     Active Substance: ESOMEPRAZOLE MAGNESIUM
     Route: 048
  2. CORTISONE [Suspect]
     Active Substance: CORTISONE\HYDROCORTISONE
     Dosage: UNK
     Route: 065
  3. SULFADIAZINE. [Suspect]
     Active Substance: SULFADIAZINE
     Dosage: UNK
     Route: 065
  4. NORTRIPTYLINE [Suspect]
     Active Substance: NORTRIPTYLINE
     Dosage: UNK
     Route: 065
  5. THIMEROSAL [Suspect]
     Active Substance: THIMEROSAL
     Dosage: UNK
     Route: 061
  6. ALOE VERA [Suspect]
     Active Substance: ALOE VERA LEAF
     Dosage: UNK
     Route: 061
  7. ENABLEX [Suspect]
     Active Substance: DARIFENACIN HYDROBROMIDE
     Route: 065
  8. PROCHLORPERAZINE. [Suspect]
     Active Substance: PROCHLORPERAZINE
     Route: 065
  9. GAMMA GLOBULIN HUMAN [Suspect]
     Active Substance: HUMAN IMMUNOGLOBULIN G
     Route: 065
  10. BYETTA [Suspect]
     Active Substance: EXENATIDE
     Route: 065
  11. ERYTHROMYCIN. [Suspect]
     Active Substance: ERYTHROMYCIN
     Dosage: UNK
     Route: 065
  12. ZOCOR [Suspect]
     Active Substance: SIMVASTATIN
     Dosage: UNK
     Route: 065
  13. LIBRAX [Suspect]
     Active Substance: CHLORDIAZEPOXIDE HYDROCHLORIDE\CLIDINIUM BROMIDE
     Dosage: UNK
     Route: 065
  14. CARBONYL IRON [Suspect]
     Active Substance: IRON
     Dosage: UNK
     Route: 065
  15. PROVIGIL [Suspect]
     Active Substance: MODAFINIL
     Route: 065
  16. METROCREAM [Suspect]
     Active Substance: METRONIDAZOLE
     Route: 065
  17. CONTRAST DYE [Suspect]
     Active Substance: UNSPECIFIED INGREDIENT
     Route: 065
  18. PROVERA [Suspect]
     Active Substance: MEDROXYPROGESTERONE ACETATE
     Dosage: UNK
     Route: 065
  19. BETADINE [Suspect]
     Active Substance: POVIDONE-IODINE
     Dosage: UNK
     Route: 065
  20. CHLORDIAZEPOXIDE HYDROCHLORIDE. [Suspect]
     Active Substance: CHLORDIAZEPOXIDE HYDROCHLORIDE
     Route: 065
  21. MERCURIDES [Suspect]
     Active Substance: UNSPECIFIED INGREDIENT
     Route: 065
  22. IMMUNOGLOBULIN (IVIG) [Suspect]
     Active Substance: HUMAN IMMUNOGLOBULIN G
     Dosage: UNK
     Route: 042
  23. SCLAVOTEST [Suspect]
     Active Substance: TUBERCULIN PURIFIED PROTEIN DERIVATIVE
     Dosage: UNK
     Route: 065
  24. NICKEL [Suspect]
     Active Substance: NICKEL
     Dosage: UNK
     Route: 065
  25. DIOVAN [Suspect]
     Active Substance: VALSARTAN
     Dosage: UNK
     Route: 065
  26. TRILIPIX [Suspect]
     Active Substance: FENOFIBRIC ACID
     Dosage: UNK
     Route: 065
  27. GLUTENS [Suspect]
     Active Substance: WHEAT GLUTEN
     Route: 065
  28. BENTYL [Suspect]
     Active Substance: DICYCLOMINE HYDROCHLORIDE
     Dosage: UNK
     Route: 065
  29. ADHESIVE BANDAGO [Suspect]
     Active Substance: DEVICE
     Route: 065
  30. IODINE. [Suspect]
     Active Substance: IODINE
     Dosage: UNK
     Route: 061
  31. REGLAN [Suspect]
     Active Substance: METOCLOPRAMIDE HYDROCHLORIDE
     Dosage: UNK
     Route: 065
  32. SULFUR. [Suspect]
     Active Substance: SULFUR
     Route: 065

REACTIONS (7)
  - Allergy to metals [None]
  - Gluten sensitivity [None]
  - Drug hypersensitivity [None]
  - Device allergy [None]
  - Iodine allergy [None]
  - Drug hypersensitivity [Unknown]
  - Contrast media allergy [None]
